FAERS Safety Report 10472976 (Version 1)
Quarter: 2014Q3

REPORT INFORMATION
  Report Type: Spontaneous
  Country: FR (occurrence: FR)
  Receive Date: 20140924
  Receipt Date: 20140924
  Transmission Date: 20150326
  Serious: Yes (Hospitalization)
  Sender: FDA-Public Use
  Company Number: PHHY2014FR122904

PATIENT
  Age: 72 Year
  Sex: Female

DRUGS (5)
  1. ANTIHYPERTENSIVES [Concomitant]
     Active Substance: UNSPECIFIED INGREDIENT
     Indication: BLOOD PRESSURE
  2. TACROLIMUS. [Suspect]
     Active Substance: TACROLIMUS
  3. CORTICOSTEROIDS [Suspect]
     Active Substance: CORTICOSTEROID NOS
  4. DIURETICS [Suspect]
     Active Substance: UNSPECIFIED INGREDIENT
  5. HYDROXYZINE [Suspect]
     Active Substance: HYDROXYZINE\HYDROXYZINE HYDROCHLORIDE

REACTIONS (7)
  - Mass [Unknown]
  - Respiratory distress [Unknown]
  - Kidney transplant rejection [Unknown]
  - Parotitis [Unknown]
  - Pseudomonas infection [Unknown]
  - Laryngeal oedema [Unknown]
  - Jugular vein thrombosis [Unknown]
